FAERS Safety Report 15567960 (Version 1)
Quarter: 2018Q4

REPORT INFORMATION
  Report Type: Spontaneous
  Country: JP (occurrence: JP)
  Receive Date: 20181030
  Receipt Date: 20181030
  Transmission Date: 20190205
  Serious: Yes (Death, Hospitalization, Other)
  Sender: FDA-Public Use
  Company Number: JP-PFIZER INC-2018298173

PATIENT
  Age: 71 Year
  Sex: Female

DRUGS (6)
  1. RANMARK [Concomitant]
     Active Substance: DENOSUMAB
     Indication: METASTASES TO BONE
     Dosage: 120 MG, 1 TIME PER MONTH
     Route: 058
     Dates: start: 20161031, end: 20180403
  2. DENOTAS [Concomitant]
     Active Substance: CALCIUM CARBONATE\CHOLECALCIFEROL\MAGNESIUM CARBONATE
     Indication: METASTASES TO BONE
     Dosage: 2 UNK, UNK
     Route: 048
     Dates: start: 20161031, end: 20180517
  3. IBRANCE [Suspect]
     Active Substance: PALBOCICLIB
     Indication: BREAST CANCER METASTATIC
     Dosage: 125 MG, UNK
     Route: 048
     Dates: start: 20180117, end: 20180125
  4. IBRANCE [Suspect]
     Active Substance: PALBOCICLIB
     Dosage: 100 MG, 1X/DAY
     Route: 048
     Dates: start: 20180219, end: 20180304
  5. DECADRON [Concomitant]
     Active Substance: DEXAMETHASONE
     Indication: BREAST CANCER RECURRENT
     Dosage: 2 MG, 1X/DAY
     Route: 048
     Dates: start: 20180119, end: 20180517
  6. FASLODEX [Concomitant]
     Active Substance: FULVESTRANT
     Indication: BREAST CANCER RECURRENT
     Dosage: 500 MG, 1 TIME PER MONTH
     Route: 030
     Dates: start: 20180123, end: 20180403

REACTIONS (6)
  - Weight increased [Unknown]
  - Neoplasm progression [Fatal]
  - Hypothyroidism [Recovered/Resolved]
  - Oedema [Unknown]
  - Cancer pain [Unknown]
  - Bone marrow failure [Unknown]

NARRATIVE: CASE EVENT DATE: 20180319
